FAERS Safety Report 6618913-9 (Version None)
Quarter: 2010Q1

REPORT INFORMATION
  Report Type: 
  Country: None (occurrence: None)
  Receive Date: 20100308
  Receipt Date: 20100304
  Transmission Date: 20100710
  Serious: Yes (Life-Threatening)
  Sender: FDA-Public Use
  Company Number: UG-ABBOTT-10P-165-0630298-00

PATIENT
  Age: 2 Year
  Sex: Female

DRUGS (5)
  1. ALUVIA TABLETS [Suspect]
     Indication: MALARIA PROPHYLAXIS
     Route: 048
     Dates: start: 20091119
  2. ALUVIA TABLETS [Suspect]
     Indication: HIV INFECTION
  3. AZT [Concomitant]
     Indication: HIV INFECTION
     Dates: end: 20100220
  4. 3TC [Concomitant]
     Indication: HIV INFECTION
  5. SEPTRIN [Concomitant]
     Indication: PROPHYLAXIS
     Route: 048
     Dates: end: 20100220

REACTIONS (1)
  - NEUTROPENIA [None]
